FAERS Safety Report 8520948 (Version 3)
Quarter: 2013Q2

REPORT INFORMATION
  Report Type: Spontaneous
  Country: US (occurrence: US)
  Receive Date: 20120419
  Receipt Date: 20130628
  Transmission Date: 20140414
  Serious: No
  Sender: FDA-Public Use
  Company Number: US-BIOGENIDEC-2012BI012660

PATIENT
  Age: 55 Year
  Sex: Female

DRUGS (8)
  1. AVONEX [Suspect]
     Indication: MULTIPLE SCLEROSIS
     Route: 030
  2. AVONEX [Suspect]
     Indication: MULTIPLE SCLEROSIS
     Route: 030
     Dates: start: 20021115, end: 2003
  3. AVONEX [Suspect]
     Indication: MULTIPLE SCLEROSIS
     Route: 030
     Dates: start: 2003, end: 2003
  4. AVONEX [Suspect]
     Indication: MULTIPLE SCLEROSIS
     Route: 030
     Dates: start: 2003
  5. EFFEXOR [Concomitant]
     Indication: DEPRESSION
     Dates: start: 1997, end: 2011
  6. EFFEXOR [Concomitant]
     Indication: DEPRESSION
     Dates: start: 2011
  7. VENLAFAXINE [Concomitant]
     Indication: DEPRESSION
     Dates: start: 2011, end: 2011
  8. MEDICATION (NOS) [Concomitant]
     Indication: PRODUCT USED FOR UNKNOWN INDICATION

REACTIONS (20)
  - Intervertebral disc protrusion [Not Recovered/Not Resolved]
  - Road traffic accident [Recovered/Resolved]
  - Tremor [Recovered/Resolved]
  - Adverse reaction [Recovered/Resolved]
  - Neck injury [Recovered/Resolved]
  - Back injury [Recovered/Resolved]
  - Hepatic steatosis [Not Recovered/Not Resolved]
  - Injection site atrophy [Not Recovered/Not Resolved]
  - Muscle twitching [Recovered/Resolved]
  - Visual impairment [Recovered/Resolved]
  - Dehydration [Recovered/Resolved]
  - Gait disturbance [Recovered/Resolved]
  - Anxiety [Recovered/Resolved]
  - Heart rate increased [Recovered/Resolved]
  - Influenza like illness [Recovered/Resolved]
  - Pain [Recovered/Resolved]
  - Pyrexia [Recovered/Resolved]
  - Headache [Recovered/Resolved]
  - Asthenia [Recovered/Resolved]
  - Malaise [Recovered/Resolved]
